FAERS Safety Report 17353103 (Version 1)
Quarter: 2020Q1

REPORT INFORMATION
  Report Type: Report from Study
  Country: US (occurrence: US)
  Receive Date: 20200131
  Receipt Date: 20200131
  Transmission Date: 20200409
  Serious: Yes (Other)
  Sender: FDA-Public Use
  Company Number: US-ZYDUS-046958

PATIENT
  Age: 69 Year
  Sex: Male
  Weight: 80.7 kg

DRUGS (1)
  1. WARFARIN [Suspect]
     Active Substance: WARFARIN
     Indication: ATRIAL FIBRILLATION

REACTIONS (1)
  - Calciphylaxis [Recovered/Resolved]
